FAERS Safety Report 8984393 (Version 1)
Quarter: 2012Q4

REPORT INFORMATION
  Report Type: 
  Country: US (occurrence: US)
  Receive Date: 20121226
  Receipt Date: 20121226
  Transmission Date: 20130627
  Serious: No
  Sender: FDA-Public Use
  Company Number: US-009507513-1212USA008598

PATIENT

DRUGS (1)
  1. DULERA [Suspect]
     Dosage: 200 mg, bid
     Route: 048

REACTIONS (1)
  - Frequent bowel movements [Unknown]
